FAERS Safety Report 10029685 (Version 1)
Quarter: 2014Q1

REPORT INFORMATION
  Report Type: Spontaneous
  Country: US (occurrence: None)
  Receive Date: 20140321
  Receipt Date: 20140321
  Transmission Date: 20141002
  Serious: Yes (Hospitalization)
  Sender: FDA-Public Use
  Company Number: None

PATIENT
  Age: 34 Year
  Sex: Male
  Weight: 99.79 kg

DRUGS (2)
  1. MARIJUANA [Suspect]
     Indication: DRUG THERAPY
     Dates: start: 20140228, end: 20140228
  2. MARIJUANA [Suspect]
     Dates: start: 20140228, end: 20140228

REACTIONS (8)
  - Product counterfeit [None]
  - Discomfort [None]
  - Malaise [None]
  - Skin infection [None]
  - Rash [None]
  - Asthenia [None]
  - Impaired work ability [None]
  - Emotional disorder [None]
